FAERS Safety Report 9146670 (Version 2)
Quarter: 2013Q1

REPORT INFORMATION
  Report Type: Spontaneous
  Country: US (occurrence: US)
  Receive Date: 20130307
  Receipt Date: 20130326
  Transmission Date: 20140127
  Serious: Yes (Other)
  Sender: FDA-Public Use
  Company Number: US-PFIZER INC-2012234812

PATIENT
  Age: 80 Year
  Sex: Female
  Weight: 52.2 kg

DRUGS (2)
  1. PREMARIN [Suspect]
     Indication: MENOPAUSE
     Dosage: 1 G, 2X/WEEK
     Route: 067
     Dates: start: 201008
  2. PREMARIN [Suspect]
     Indication: HORMONE REPLACEMENT THERAPY
     Dosage: UNK, 2X/WEEK
     Route: 067
     Dates: start: 1966

REACTIONS (4)
  - Hypertension [Unknown]
  - Tremor [Unknown]
  - Product quality issue [Unknown]
  - Incorrect dose administered [Unknown]
